FAERS Safety Report 15766988 (Version 2)
Quarter: 2019Q1

REPORT INFORMATION
  Report Type: Spontaneous
  Country: JP (occurrence: JP)
  Receive Date: 20181227
  Receipt Date: 20190129
  Transmission Date: 20190417
  Serious: Yes (Death, Hospitalization)
  Sender: FDA-Public Use
  Company Number: JP-TEVA-2018-JP-991661

PATIENT
  Age: 46 Year
  Sex: Female

DRUGS (12)
  1. PREDNISOLONE. [Suspect]
     Active Substance: PREDNISOLONE
     Indication: DIFFUSE LARGE B-CELL LYMPHOMA STAGE IV
     Dosage: AS A PART OF R-CHOP REGIMEN
     Route: 065
     Dates: start: 2012
  2. DEXAMETHASONE. [Suspect]
     Active Substance: DEXAMETHASONE
     Indication: DIFFUSE LARGE B-CELL LYMPHOMA STAGE IV
     Dosage: AS A PART OF CHASER REGIMEN
     Route: 065
     Dates: start: 2012
  3. VINCRISTINE [Suspect]
     Active Substance: VINCRISTINE
     Indication: DIFFUSE LARGE B-CELL LYMPHOMA STAGE IV
     Dosage: AS A PART OF R-CHOP REGIMEN
     Route: 065
     Dates: start: 2012
  4. CYTARABINE. [Suspect]
     Active Substance: CYTARABINE
     Indication: DIFFUSE LARGE B-CELL LYMPHOMA STAGE IV
     Dosage: AS A PART OF R-CHOP AND CHASER REGIMEN
     Route: 065
     Dates: start: 2012
  5. ETOPOSIDE. [Suspect]
     Active Substance: ETOPOSIDE
     Indication: DIFFUSE LARGE B-CELL LYMPHOMA STAGE IV
     Dosage: AS A PART OF CHASER REGIMEN
     Route: 065
     Dates: start: 2012
  6. CYCLOPHOSPHAMIDE. [Suspect]
     Active Substance: CYCLOPHOSPHAMIDE
     Indication: DIFFUSE LARGE B-CELL LYMPHOMA STAGE IV
     Dosage: AS A PART OF R-CHOP AND CHASER REGIMEN
     Route: 065
     Dates: start: 2012
  7. METHYLPREDNISOLONE. [Concomitant]
     Active Substance: METHYLPREDNISOLONE
     Dosage: AGAIN INCREASED TO 125MG
     Route: 065
  8. DOXORUBICIN [Suspect]
     Active Substance: DOXORUBICIN
     Indication: DIFFUSE LARGE B-CELL LYMPHOMA STAGE IV
     Dosage: AS A PART OF R-CHOP REGIMEN
     Route: 065
     Dates: start: 2012
  9. METHYLPREDNISOLONE. [Concomitant]
     Active Substance: METHYLPREDNISOLONE
     Indication: DIFFUSE LARGE B-CELL LYMPHOMA STAGE IV
     Dosage: FOLLOWED BY 80MG
     Route: 065
  10. RITUXIMAB. [Suspect]
     Active Substance: RITUXIMAB
     Route: 065
     Dates: start: 2014
  11. PREDNISOLONE. [Suspect]
     Active Substance: PREDNISOLONE
     Indication: PANCYTOPENIA
     Route: 065
     Dates: start: 201307, end: 201406
  12. RITUXIMAB. [Suspect]
     Active Substance: RITUXIMAB
     Indication: DIFFUSE LARGE B-CELL LYMPHOMA STAGE IV
     Dosage: AS A PART OF R-CHOP AND CHASER REGIMEN
     Route: 065
     Dates: start: 2012

REACTIONS (7)
  - Pancytopenia [Fatal]
  - Cerebral haemorrhage [Fatal]
  - Altered state of consciousness [Fatal]
  - Drug ineffective [Fatal]
  - Epstein-Barr virus associated lymphoproliferative disorder [Fatal]
  - Haemophagocytic lymphohistiocytosis [Fatal]
  - Epstein-Barr virus infection [Fatal]

NARRATIVE: CASE EVENT DATE: 2014
